FAERS Safety Report 13361115 (Version 2)
Quarter: 2017Q2

REPORT INFORMATION
  Report Type: Spontaneous
  Country: US (occurrence: US)
  Receive Date: 20170322
  Receipt Date: 20170620
  Transmission Date: 20170830
  Serious: No
  Sender: FDA-Public Use
  Company Number: US-UPSHER-SMITH LABORATORIES, INC.-17000182

PATIENT
  Age: 72 Year
  Sex: Male

DRUGS (9)
  1. TESTOSTERONE. [Suspect]
     Active Substance: TESTOSTERONE
     Indication: BLOOD TESTOSTERONE DECREASED
     Dosage: 100 MG, QD
     Route: 062
     Dates: start: 20161101, end: 201702
  2. VITAMIN D3 [Concomitant]
     Active Substance: CHOLECALCIFEROL
  3. VITAMIN K [Concomitant]
     Active Substance: PHYTONADIONE
  4. UNSPECIFIED HERBS [Concomitant]
     Active Substance: UNSPECIFIED INGREDIENT
     Dosage: UNK
     Dates: start: 201701
  5. TESTOSTERONE. [Suspect]
     Active Substance: TESTOSTERONE
     Dosage: UNK, 1X/DAY
     Route: 061
     Dates: start: 201611, end: 201704
  6. UNSPECIFIED HERBS [Concomitant]
     Active Substance: UNSPECIFIED INGREDIENT
     Dosage: UNK
  7. VITAMIN C [Concomitant]
     Active Substance: ASCORBIC ACID
  8. MULTIVITAMIN [Concomitant]
     Active Substance: VITAMINS
  9. VITAMIN B12 [Concomitant]
     Active Substance: CYANOCOBALAMIN

REACTIONS (4)
  - Lichenoid keratosis [Not Recovered/Not Resolved]
  - Application site irritation [Unknown]
  - Dermatitis contact [Not Recovered/Not Resolved]
  - Application site erythema [Unknown]

NARRATIVE: CASE EVENT DATE: 20161101
